FAERS Safety Report 11842877 (Version 1)
Quarter: 2015Q4

REPORT INFORMATION
  Report Type: Spontaneous
  Country: US (occurrence: US)
  Receive Date: 20151216
  Receipt Date: 20151216
  Transmission Date: 20160305
  Serious: No
  Sender: FDA-Public Use
  Company Number: US-BAUSCH-BL-2015-012591

PATIENT
  Sex: Female

DRUGS (5)
  1. IRBESARTAN. [Suspect]
     Active Substance: IRBESARTAN
     Indication: BLOOD PRESSURE MEASUREMENT
     Dosage: 1 AND 1/2 TABLET DAILY
     Route: 048
     Dates: start: 201504
  2. CARDIZEM [Suspect]
     Active Substance: DILTIAZEM HYDROCHLORIDE
     Indication: BLOOD PRESSURE MEASUREMENT
     Route: 048
     Dates: start: 201504
  3. RANEXA [Concomitant]
     Active Substance: RANOLAZINE
     Indication: PRODUCT USED FOR UNKNOWN INDICATION
  4. CARDIZEM [Suspect]
     Active Substance: DILTIAZEM HYDROCHLORIDE
     Indication: CORONARY ARTERY DISEASE
  5. IRBESARTAN. [Suspect]
     Active Substance: IRBESARTAN
     Indication: CORONARY ARTERY DISEASE

REACTIONS (2)
  - Nervousness [Not Recovered/Not Resolved]
  - Dyspnoea [Not Recovered/Not Resolved]
